FAERS Safety Report 18260509 (Version 1)
Quarter: 2020Q3

REPORT INFORMATION
  Report Type: Spontaneous
  Country: GB (occurrence: GB)
  Receive Date: 20200914
  Receipt Date: 20200914
  Transmission Date: 20201103
  Serious: Yes (Other)
  Sender: FDA-Public Use
  Company Number: GB-TEVA-2020-GB-1826058

PATIENT
  Sex: Female

DRUGS (1)
  1. ALENDRONATE SODIUM TRIHYDRATE [Suspect]
     Active Substance: ALENDRONATE SODIUM
     Dosage: TWO WEEKLY DOSES

REACTIONS (2)
  - Palpitations [Unknown]
  - Cardiac flutter [Unknown]
